FAERS Safety Report 5489931-1 (Version None)
Quarter: 2007Q4

REPORT INFORMATION
  Report Type: 
  Country: None (occurrence: None)
  Receive Date: 20071018
  Receipt Date: 20071010
  Transmission Date: 20080405
  Serious: Yes (Hospitalization, Other)
  Sender: FDA-Public Use
  Company Number: BR-SHR-BR-2007-038879

PATIENT
  Age: 39 Year
  Sex: Female
  Weight: 56 kg

DRUGS (2)
  1. MIRENA [Suspect]
     Dosage: 20 A?G/DAY, CONT
     Route: 015
     Dates: start: 20060821, end: 20070914
  2. CLEXANE                                 /GFR/ [Concomitant]
     Route: 065
     Dates: start: 20070914

REACTIONS (3)
  - PREMENSTRUAL SYNDROME [None]
  - UTERINE LEIOMYOMA [None]
  - VENOUS THROMBOSIS LIMB [None]
